FAERS Safety Report 5553409-7 (Version None)
Quarter: 2007Q4

REPORT INFORMATION
  Report Type: 
  Country: None (occurrence: None)
  Receive Date: 20071213
  Receipt Date: 20071207
  Transmission Date: 20080405
  Serious: Yes (Hospitalization)
  Sender: FDA-Public Use
  Company Number: GR-BRISTOL-MYERS SQUIBB COMPANY-14007199

PATIENT
  Age: 6 Decade
  Sex: Female

DRUGS (2)
  1. BARACLUDE [Suspect]
     Indication: HEPATITIS B
     Dosage: 06-DEC-2007
     Route: 048
     Dates: start: 20070101, end: 20071206
  2. LEVOTHYROXINE SODIUM [Concomitant]
     Dosage: T4
     Route: 048

REACTIONS (2)
  - DIARRHOEA [None]
  - RASH [None]
